FAERS Safety Report 5524964-8 (Version None)
Quarter: 2007Q4

REPORT INFORMATION
  Report Type: 
  Country: None (occurrence: None)
  Receive Date: 20071119
  Receipt Date: 20071106
  Transmission Date: 20080405
  Serious: Yes (Congenital Anomaly)
  Sender: FDA-Public Use
  Company Number: B0495168A

PATIENT

DRUGS (5)
  1. AZATHIOPRINE [Suspect]
     Indication: RENAL TRANSPLANT
     Dosage: 125 MG/ PER DAY / TRANSPLACENTARY
     Route: 064
  2. RANITIDINE HYDROCHLORIDE [Suspect]
     Dosage: TRANSPLACENTARY
     Route: 064
  3. PREDNISONE [Suspect]
     Dosage: TRASPLACENTARY
     Route: 064
  4. FRUSEMIDE (FORMULATION UNKNONW) [Suspect]
     Dosage: TRANSPLACENTARY
     Route: 064
  5. UNKNOWN (FORMULATION UNKNOWN) (UNKNOWN) [Suspect]
     Dosage: TRANSPLACENTARY
     Route: 064

REACTIONS (3)
  - ATRIAL SEPTAL DEFECT [None]
  - BODY DYSMORPHIC DISORDER [None]
  - DRUG EXPOSURE DURING PREGNANCY [None]
